FAERS Safety Report 6883544-2 (Version None)
Quarter: 2010Q3

REPORT INFORMATION
  Report Type: 
  Country: None (occurrence: None)
  Receive Date: 20100729
  Receipt Date: 20100722
  Transmission Date: 20110219
  Serious: Yes (Hospitalization)
  Sender: FDA-Public Use
  Company Number: JP-BAYER-201012190BYL

PATIENT
  Age: 51 Year
  Sex: Female
  Weight: 64 kg

DRUGS (7)
  1. AVELOX [Suspect]
     Indication: PNEUMONIA BACTERIAL
     Dosage: TOTAL DAILY DOSE: 400 MG  UNIT DOSE: 400 MG
     Route: 048
     Dates: start: 20100430, end: 20100502
  2. AMARYL [Suspect]
     Indication: DIABETES MELLITUS
     Dosage: TOTAL DAILY DOSE: 1 MG  UNIT DOSE: 1 MG
     Route: 048
     Dates: start: 20090324
  3. BASEN [Suspect]
     Indication: DIABETES MELLITUS
     Dosage: TOTAL DAILY DOSE: 0.3 MG  UNIT DOSE: 0.3 MG
     Route: 048
     Dates: start: 20090324
  4. MICARDIS [Suspect]
     Indication: HYPERTENSION
     Dosage: TOTAL DAILY DOSE: 20 MG  UNIT DOSE: 40 MG
     Route: 048
     Dates: start: 20080801
  5. ZOSYN [Suspect]
     Indication: PNEUMONIA BACTERIAL
     Dosage: TOTAL DAILY DOSE: 13.5 G  UNIT DOSE: 4.5 G
     Route: 041
     Dates: start: 20100430, end: 20100506
  6. BIOFERMIN R [Concomitant]
     Dosage: TOTAL DAILY DOSE: 18 MG  UNIT DOSE: 6 MG
     Route: 048
     Dates: start: 20100430, end: 20100502
  7. VOLTAREN [Concomitant]
     Indication: PYREXIA
     Route: 054
     Dates: start: 20100430

REACTIONS (1)
  - HYPOGLYCAEMIA [None]
